FAERS Safety Report 11682438 (Version 1)
Quarter: 2015Q4

REPORT INFORMATION
  Report Type: Spontaneous
  Country: CA (occurrence: CA)
  Receive Date: 20151029
  Receipt Date: 20151029
  Transmission Date: 20160304
  Serious: Yes (Other)
  Sender: FDA-Public Use
  Company Number: CA-TEVA-603716ACC

PATIENT
  Age: 39 Year
  Sex: Male

DRUGS (1)
  1. CARBAMAZEPINE. [Suspect]
     Active Substance: CARBAMAZEPINE
     Indication: MOOD ALTERED
     Dosage: 400 MILLIGRAM DAILY;
     Route: 048

REACTIONS (3)
  - Aphasia [Unknown]
  - Central nervous system stimulation [Unknown]
  - Insomnia [Unknown]
